FAERS Safety Report 8829970 (Version 1)
Quarter: 2012Q4

REPORT INFORMATION
  Report Type: 
  Country: US (occurrence: US)
  Receive Date: 20121008
  Receipt Date: 20121008
  Transmission Date: 20130627
  Serious: No
  Sender: FDA-Public Use
  Company Number: US-BAYER-2012-102473

PATIENT
  Sex: Female

DRUGS (3)
  1. MIDOL [Suspect]
     Indication: OEDEMATOUS WEIGHT GAIN
     Dosage: every 12 hours
     Route: 048
  2. MOTRIN [Concomitant]
     Dosage: 800 mg, UNK
  3. PAIN MEDICATION FOR SHOULDER [Concomitant]

REACTIONS (11)
  - Malaise [None]
  - Diarrhoea [None]
  - Abdominal discomfort [None]
  - Headache [None]
  - Chest pain [None]
  - Sinusitis [None]
  - Lacrimation increased [None]
  - Sinus congestion [None]
  - Migraine [None]
  - Vision blurred [None]
  - Expired drug administered [None]
